FAERS Safety Report 12182436 (Version 1)
Quarter: 2016Q1

REPORT INFORMATION
  Report Type: Spontaneous
  Country: US (occurrence: US)
  Receive Date: 20160316
  Receipt Date: 20160316
  Transmission Date: 20160526
  Serious: No
  Sender: FDA-Public Use
  Company Number: US-009507513-1603USA003829

PATIENT
  Sex: Male

DRUGS (1)
  1. NASONEX [Suspect]
     Active Substance: MOMETASONE FUROATE
     Dosage: 50 MCG/2 SPRAYS IN EACH NOSTRIL ONCE A DAY
     Route: 045
     Dates: start: 2013

REACTIONS (2)
  - Dry throat [Unknown]
  - Product physical issue [Unknown]
